FAERS Safety Report 8455942-7 (Version None)
Quarter: 2012Q2

REPORT INFORMATION
  Report Type: 
  Country: None (occurrence: None)
  Receive Date: 20120621
  Receipt Date: 20120615
  Transmission Date: 20120825
  Serious: Yes (Other)
  Sender: FDA-Public Use
  Company Number: IE-ROCHE-1063754

PATIENT
  Age: 76 Year
  Sex: Male

DRUGS (14)
  1. CYCLOPHOSPHAMIDE [Concomitant]
     Indication: NON-HODGKIN'S LYMPHOMA
  2. VINCRISTINE [Concomitant]
     Indication: NON-HODGKIN'S LYMPHOMA
  3. NEBIVOLOL HCL [Concomitant]
     Route: 048
  4. MABTHERA [Suspect]
     Indication: NON-HODGKIN'S LYMPHOMA
     Route: 042
     Dates: start: 20120425, end: 20120426
  5. CHLORPHENIRAMINE MALEATE [Concomitant]
     Route: 042
  6. ACETAMINOPHEN [Concomitant]
     Indication: PREMEDICATION
     Route: 048
     Dates: start: 20120426
  7. HYDROCORTISONE [Concomitant]
     Indication: PREMEDICATION
     Route: 042
     Dates: start: 20120426
  8. HYDROCORTISONE [Concomitant]
     Route: 042
  9. PREDNISOLONE [Concomitant]
     Indication: NON-HODGKIN'S LYMPHOMA
  10. MABTHERA [Suspect]
     Route: 042
     Dates: start: 20120426, end: 20120426
  11. LYRICA [Concomitant]
     Indication: ANALGESIC THERAPY
     Route: 048
  12. DALMANE [Concomitant]
     Indication: SLEEP DISORDER
  13. OMNEXEL [Concomitant]
     Route: 048
  14. CHLORPHENIRAMINE MALEATE [Concomitant]
     Indication: PREMEDICATION
     Route: 048
     Dates: start: 20120426

REACTIONS (5)
  - WHEEZING [None]
  - URTICARIA [None]
  - FLUSHING [None]
  - RASH [None]
  - OXYGEN SATURATION DECREASED [None]
